FAERS Safety Report 5472061-2 (Version None)
Quarter: 2007Q3

REPORT INFORMATION
  Report Type: 
  Country: None (occurrence: None)
  Receive Date: 20070928
  Receipt Date: 20070918
  Transmission Date: 20080115
  Serious: Yes (Other)
  Sender: FDA-Public Use
  Company Number: BR-PFIZER INC-2007079189

PATIENT
  Sex: Female

DRUGS (5)
  1. CHAMPIX [Suspect]
     Indication: SMOKING CESSATION THERAPY
     Route: 048
  2. CHAMPIX [Suspect]
     Indication: TOBACCO USER
  3. ALL OTHER THERAPEUTIC PRODUCTS [Concomitant]
  4. LIPITOR [Concomitant]
     Route: 048
  5. ATENOLOL AND CHLORTHALIDONE [Concomitant]
     Route: 048

REACTIONS (8)
  - BLOOD PRESSURE DECREASED [None]
  - BRONCHITIS [None]
  - COUGH [None]
  - DYSPNOEA [None]
  - FATIGUE [None]
  - INFLUENZA [None]
  - INSOMNIA [None]
  - RESPIRATORY TRACT CONGESTION [None]
